FAERS Safety Report 17521783 (Version 1)
Quarter: 2020Q1

REPORT INFORMATION
  Report Type: Spontaneous
  Country: DE (occurrence: DE)
  Receive Date: 20200310
  Receipt Date: 20200310
  Transmission Date: 20200409
  Serious: Yes (Hospitalization, Other)
  Sender: FDA-Public Use
  Company Number: DE-SA-2020SA058275

PATIENT
  Age: 4 Month
  Sex: Male

DRUGS (1)
  1. RIFAMPICIN [Suspect]
     Active Substance: RIFAMPIN
     Indication: PROPHYLACTIC CHEMOTHERAPY
     Dosage: DAILY DOSE: 120 MG MILLGRAM(S) EVERY DAYS 2 SEPARATED DOSES
     Route: 048
     Dates: start: 20200110, end: 20200112

REACTIONS (1)
  - Myoclonic epilepsy [Unknown]

NARRATIVE: CASE EVENT DATE: 20200112
